FAERS Safety Report 5655105-4 (Version None)
Quarter: 2008Q1

REPORT INFORMATION
  Report Type: 
  Country: None (occurrence: None)
  Receive Date: 20080307
  Receipt Date: 20071212
  Transmission Date: 20080703
  Serious: No
  Sender: FDA-Public Use
  Company Number: A0698604A

PATIENT
  Age: 36 Year
  Sex: Male

DRUGS (2)
  1. REQUIP [Suspect]
     Indication: RESTLESS LEGS SYNDROME
     Dosage: 25MG TWICE PER DAY
     Route: 048
     Dates: start: 20060501, end: 20070101
  2. NO CONCURRENT MEDICATION [Concomitant]

REACTIONS (1)
  - PATHOLOGICAL GAMBLING [None]
